FAERS Safety Report 23623102 (Version 1)
Quarter: 2024Q1

REPORT INFORMATION
  Report Type: Spontaneous
  Country: US (occurrence: US)
  Receive Date: 20240312
  Receipt Date: 20240312
  Transmission Date: 20240409
  Serious: Yes (Other)
  Sender: FDA-Public Use
  Company Number: NUS2024US033608_NC

PATIENT
  Age: 35 Year
  Sex: Male

DRUGS (12)
  1. CISPLATIN [Suspect]
     Active Substance: CISPLATIN
     Indication: Metastases to lung
     Dosage: UNK, CYCLE 1 GC THERAPY
     Route: 065
  2. CISPLATIN [Suspect]
     Active Substance: CISPLATIN
     Dosage: UNK, CYCLE 2 GC THERAPY
     Route: 065
  3. CISPLATIN [Suspect]
     Active Substance: CISPLATIN
     Dosage: UNK, CYCLE 3 GC THERAPY
     Route: 065
  4. CISPLATIN [Suspect]
     Active Substance: CISPLATIN
     Dosage: UNK, CYCLE 4 GC THERAPY
     Route: 065
  5. CISPLATIN [Suspect]
     Active Substance: CISPLATIN
     Dosage: UNK, CYCLE 5 GC THERAPY
     Route: 065
  6. CISPLATIN [Suspect]
     Active Substance: CISPLATIN
     Dosage: UNK, CYCLE 6 GC THERAPY
     Route: 065
  7. GEMCITABINE [Suspect]
     Active Substance: GEMCITABINE
     Indication: Metastases to lung
     Dosage: UNK, CYCLE 1 GC THERAPY
     Route: 065
  8. GEMCITABINE [Suspect]
     Active Substance: GEMCITABINE
     Dosage: UNK, CYCLE 2 GC THERAPY
     Route: 065
  9. GEMCITABINE [Suspect]
     Active Substance: GEMCITABINE
     Dosage: UNK, CYCLE 3 GC THERAPY
     Route: 065
  10. GEMCITABINE [Suspect]
     Active Substance: GEMCITABINE
     Dosage: UNK, CYCLE 4 GC THERAPY
     Route: 065
  11. GEMCITABINE [Suspect]
     Active Substance: GEMCITABINE
     Dosage: UNK, CYCLE 5 GC THERAPY
     Route: 065
  12. GEMCITABINE [Suspect]
     Active Substance: GEMCITABINE
     Dosage: UNK, CYCLE 6 GC THERAPY
     Route: 065

REACTIONS (1)
  - Disease progression [Unknown]
